FAERS Safety Report 8379982-1 (Version None)
Quarter: 2012Q2

REPORT INFORMATION
  Report Type: 
  Country: None (occurrence: None)
  Receive Date: 20120523
  Receipt Date: 20120509
  Transmission Date: 20120825
  Serious: Yes (Hospitalization, Other)
  Sender: FDA-Public Use
  Company Number: US-ELI_LILLY_AND_COMPANY-US201203002315

PATIENT
  Age: 54 Year
  Sex: Female

DRUGS (3)
  1. SYMBYAX [Suspect]
     Indication: DEPRESSION
     Dosage: 12MG / 25MG, QD
     Route: 065
  2. ZYPREXA [Suspect]
     Indication: DEPRESSION
     Dosage: 20 MG, QD
     Route: 065
     Dates: start: 20000101
  3. ZYPREXA [Suspect]
     Dosage: 10 MG, QD
     Route: 065

REACTIONS (7)
  - INSOMNIA [None]
  - SUICIDAL IDEATION [None]
  - DECREASED APPETITE [None]
  - WITHDRAWAL SYNDROME [None]
  - HOSPITALISATION [None]
  - OFF LABEL USE [None]
  - FEELING ABNORMAL [None]
